FAERS Safety Report 12397024 (Version 3)
Quarter: 2016Q3

REPORT INFORMATION
  Report Type: Report from Study
  Country: US (occurrence: US)
  Receive Date: 20160524
  Receipt Date: 20160810
  Transmission Date: 20161109
  Serious: No
  Sender: FDA-Public Use
  Company Number: PHEH2016US012521

PATIENT
  Age: 25 Year
  Sex: Female

DRUGS (2)
  1. COSENTYX [Suspect]
     Active Substance: SECUKINUMAB
     Indication: PSORIASIS
     Dosage: 300 MG, QW
     Route: 058
     Dates: start: 20160510
  2. COSENTYX [Suspect]
     Active Substance: SECUKINUMAB
     Dosage: 300 MG, QMO

REACTIONS (4)
  - Presyncope [Unknown]
  - Arthralgia [Unknown]
  - Pharyngitis streptococcal [Unknown]
  - Dizziness [Unknown]

NARRATIVE: CASE EVENT DATE: 20160510
